FAERS Safety Report 25575808 (Version 1)
Quarter: 2025Q3

REPORT INFORMATION
  Report Type: Spontaneous
  Country: EU (occurrence: EU)
  Receive Date: 20250718
  Receipt Date: 20250718
  Transmission Date: 20251021
  Serious: Yes (Other)
  Sender: AUROBINDO
  Company Number: EU-MINISAL02-1047915

PATIENT
  Age: 43 Year
  Sex: Female
  Weight: 61 kg

DRUGS (3)
  1. DULOXETINE [Interacting]
     Active Substance: DULOXETINE
     Indication: Psychotic disorder
     Dosage: 90 MG 1V./DIE
     Route: 048
     Dates: start: 202206, end: 202403
  2. DULOXETINE [Interacting]
     Active Substance: DULOXETINE
     Indication: Depression
  3. LURASIDONE [Suspect]
     Active Substance: LURASIDONE
     Indication: Psychotic disorder
     Dosage: 111 MG 1 V./DIE
     Route: 048
     Dates: start: 202205, end: 202501

REACTIONS (2)
  - Skin discolouration [Recovering/Resolving]
  - Tooth discolouration [Recovering/Resolving]

NARRATIVE: CASE EVENT DATE: 20230701
